FAERS Safety Report 5441138-X (Version None)
Quarter: 2007Q3

REPORT INFORMATION
  Report Type: 
  Country: None (occurrence: None)
  Receive Date: 20070831
  Receipt Date: 20070820
  Transmission Date: 20080115
  Serious: Yes (Hospitalization)
  Sender: FDA-Public Use
  Company Number: US-PFIZER INC-2007068125

PATIENT
  Sex: Male
  Weight: 88.5 kg

DRUGS (18)
  1. SU-011,248 [Suspect]
     Indication: RENAL CANCER METASTATIC
     Route: 048
     Dates: start: 20070509, end: 20070814
  2. GEMCITABINE HCL [Suspect]
     Indication: RENAL CANCER METASTATIC
     Route: 042
     Dates: start: 20070508, end: 20070814
  3. ATIVAN [Concomitant]
     Indication: INSOMNIA
  4. ATIVAN [Concomitant]
     Indication: ANXIETY
  5. PERCOCET [Concomitant]
     Indication: PAIN
     Dosage: TEXT:1-2 TABLETS
  6. ASCORBIC ACID [Concomitant]
     Indication: SUPPLEMENTATION THERAPY
  7. CYANOCOBALAMIN [Concomitant]
     Indication: SUPPLEMENTATION THERAPY
  8. FERROUS SULFATE TAB [Concomitant]
     Indication: SUPPLEMENTATION THERAPY
  9. TYLENOL (CAPLET) [Concomitant]
     Indication: PYREXIA
  10. PROCRIT [Concomitant]
     Indication: HAEMOGLOBIN DECREASED
     Dosage: DAILY DOSE:40000I.U.
     Dates: start: 20070412
  11. SENOKOT [Concomitant]
     Indication: CONSTIPATION
     Dosage: TEXT:1-2 TABLETS
     Dates: start: 20070523, end: 20070801
  12. IBUPROFEN [Concomitant]
     Indication: PAIN
     Dates: start: 20070401
  13. TUMS [Concomitant]
     Indication: GASTROOESOPHAGEAL REFLUX DISEASE
     Dates: start: 20070515
  14. TUMS [Concomitant]
     Indication: BLOOD CALCIUM DECREASED
  15. LOTRIMIN [Concomitant]
     Indication: RASH
     Dates: start: 20070718
  16. LASIX [Concomitant]
     Dates: start: 20070611, end: 20070814
  17. CENTRUM [Concomitant]
     Dates: start: 20070724
  18. COLACE [Concomitant]
     Indication: CONSTIPATION
     Dosage: TEXT:1 TABLET
     Dates: start: 20070523

REACTIONS (3)
  - BLOOD PRESSURE INCREASED [None]
  - MENTAL STATUS CHANGES [None]
  - METABOLIC DISORDER [None]
